FAERS Safety Report 6935301-6 (Version None)
Quarter: 2010Q3

REPORT INFORMATION
  Report Type: 
  Country: None (occurrence: None)
  Receive Date: 20100822
  Receipt Date: 20100803
  Transmission Date: 20110219
  Serious: Yes (Other)
  Sender: FDA-Public Use
  Company Number: PHHY2010JP49932

PATIENT
  Age: 62 Year
  Sex: Male

DRUGS (6)
  1. VOLTAREN [Suspect]
     Indication: RHEUMATOID ARTHRITIS
     Dosage: 25 MG/DAY
     Route: 048
  2. VOLTAREN [Suspect]
     Dosage: UNK
  3. PREDONINE [Concomitant]
     Indication: RHEUMATOID ARTHRITIS
     Dosage: 10 MG/DAY
  4. PREDONINE [Concomitant]
     Dosage: UNK
  5. RHEUMATREX [Concomitant]
     Indication: RHEUMATOID ARTHRITIS
     Dosage: 4 MG/ WEEK
  6. RHEUMATREX [Concomitant]
     Dosage: UNK

REACTIONS (8)
  - ABDOMINAL DISCOMFORT [None]
  - CILIARY MUSCLE SPASM [None]
  - EYE SWELLING [None]
  - IRITIS [None]
  - OCULAR DISCOMFORT [None]
  - PAIN [None]
  - SCLERAL THINNING [None]
  - SCLERITIS [None]
